FAERS Safety Report 23880908 (Version 1)
Quarter: 2024Q2

REPORT INFORMATION
  Report Type: Report from Study
  Country: AR (occurrence: AR)
  Receive Date: 20240521
  Receipt Date: 20240521
  Transmission Date: 20240717
  Serious: Yes (Other)
  Sender: FDA-Public Use
  Company Number: AR-AKCEA THERAPEUTICS, INC.-2024IS004809

PATIENT

DRUGS (4)
  1. TEGSEDI [Suspect]
     Active Substance: INOTERSEN SODIUM
     Indication: Hereditary neuropathic amyloidosis
     Dosage: 284 MILLIGRAM, QW
     Route: 058
     Dates: start: 20231026
  2. TEGSEDI [Suspect]
     Active Substance: INOTERSEN SODIUM
     Dosage: 284 MILLIGRAM
     Route: 058
     Dates: start: 20210128, end: 20230420
  3. PREGABALIN [Concomitant]
     Active Substance: PREGABALIN
     Indication: Product used for unknown indication
     Dosage: 75 MILLIGRAM
     Route: 065
  4. METFORMIN HYDROCHLORIDE [Concomitant]
     Active Substance: METFORMIN HYDROCHLORIDE
     Indication: Product used for unknown indication
     Dosage: 850 MILLIGRAM
     Route: 065

REACTIONS (2)
  - Neuropathy peripheral [Recovered/Resolved]
  - Blood pressure decreased [Recovered/Resolved]

NARRATIVE: CASE EVENT DATE: 20230615
